FAERS Safety Report 10917548 (Version 1)
Quarter: 2015Q1

REPORT INFORMATION
  Report Type: Spontaneous
  Country: US (occurrence: US)
  Receive Date: 20150316
  Receipt Date: 20150316
  Transmission Date: 20150721
  Serious: Yes (Hospitalization, Other)
  Sender: FDA-Public Use
  Company Number: US-PFIZER INC-2015089609

PATIENT

DRUGS (1)
  1. LYRICA [Suspect]
     Active Substance: PREGABALIN
     Dosage: 300 MG, 3 TIMES DAILY
     Dates: start: 2013

REACTIONS (2)
  - Overdose [Unknown]
  - Seizure [Unknown]

NARRATIVE: CASE EVENT DATE: 2013
